FAERS Safety Report 9159573 (Version 2)
Quarter: 2013Q1

REPORT INFORMATION
  Report Type: Spontaneous
  Country: GB (occurrence: GB)
  Receive Date: 20130313
  Receipt Date: 20130321
  Transmission Date: 20140127
  Serious: Yes (Hospitalization)
  Sender: FDA-Public Use
  Company Number: GB-US-EMD SERONO, INC.-7198122

PATIENT
  Age: 1 Year
  Sex: Female

DRUGS (1)
  1. SAIZEN [Suspect]
     Indication: HYPOTHALAMO-PITUITARY DISORDER
     Route: 058
     Dates: start: 20111101

REACTIONS (1)
  - Viral infection [Unknown]
